FAERS Safety Report 24618192 (Version 1)
Quarter: 2024Q4

REPORT INFORMATION
  Report Type: Spontaneous
  Country: US (occurrence: US)
  Receive Date: 20241114
  Receipt Date: 20241114
  Transmission Date: 20250114
  Serious: Yes (Hospitalization)
  Sender: MYLAN
  Company Number: US-MYLANLABS-2024M1101665

PATIENT
  Age: 12 Year
  Sex: Male

DRUGS (5)
  1. PREDNISONE [Suspect]
     Active Substance: PREDNISONE
     Indication: Pemphigus
     Dosage: UNK,TAPER STARTING AT APPROXIMATELY 0.9?MG/KG/DAY
     Route: 065
  2. DESONIDE [Concomitant]
     Active Substance: DESONIDE
     Indication: Pemphigus
     Dosage: UNK UNK, BID
     Route: 061
  3. TRIAMCINOLONE ACETONIDE [Concomitant]
     Active Substance: TRIAMCINOLONE ACETONIDE
     Indication: Pemphigus
     Dosage: UNK UNK, BID
     Route: 061
  4. CLINDAMYCIN [Concomitant]
     Active Substance: CLINDAMYCIN
     Indication: Staphylococcal infection
     Dosage: UNK
     Route: 048
  5. MUPIROCIN [Concomitant]
     Active Substance: MUPIROCIN
     Indication: Staphylococcal infection
     Dosage: UNK
     Route: 061

REACTIONS (2)
  - Rebound effect [Recovering/Resolving]
  - Pemphigus [Recovering/Resolving]
